FAERS Safety Report 8193354-4 (Version None)
Quarter: 2012Q1

REPORT INFORMATION
  Report Type: 
  Country: None (occurrence: None)
  Receive Date: 20120308
  Receipt Date: 20120228
  Transmission Date: 20120608
  Serious: Yes (Other)
  Sender: FDA-Public Use
  Company Number: US-SANOFI-AVENTIS-2010SA074884

PATIENT
  Age: 81 Year
  Sex: Male
  Weight: 73 kg

DRUGS (8)
  1. LISINOPRIL [Concomitant]
     Indication: BLOOD PRESSURE
  2. MULTAQ [Suspect]
     Indication: ARRHYTHMIA
     Route: 048
     Dates: start: 20100201
  3. MULTAQ [Suspect]
     Route: 048
     Dates: start: 20100201
  4. LAXATIVES [Concomitant]
  5. CALCIUM CARBONATE [Concomitant]
  6. MULTAQ [Suspect]
     Indication: ATRIAL FIBRILLATION
     Route: 048
     Dates: start: 20100201
  7. MULTAQ [Suspect]
     Route: 048
     Dates: start: 20100201
  8. MAGNESIUM HYDROXIDE TAB [Concomitant]

REACTIONS (3)
  - ARRHYTHMIA [None]
  - PALPITATIONS [None]
  - ATRIAL FIBRILLATION [None]
